FAERS Safety Report 4868957-2 (Version None)
Quarter: 2005Q4

REPORT INFORMATION
  Report Type: 
  Country: None (occurrence: None)
  Receive Date: 20051223
  Receipt Date: 20051215
  Transmission Date: 20060501
  Serious: Yes (Hospitalization)
  Sender: FDA-Public Use
  Company Number: 2005156449

PATIENT
  Age: 74 Year
  Sex: Male
  Weight: 58 kg

DRUGS (9)
  1. ALDACTONE [Suspect]
     Indication: CARDIAC FAILURE
     Dosage: 12.5 MG (25 MD, DAILY), ORAL
     Route: 048
     Dates: end: 20050813
  2. RAMIPRIL [Suspect]
     Indication: ILL-DEFINED DISORDER
     Dosage: 10 MG (DAILY), ORAL
     Route: 048
     Dates: end: 20050813
  3. FUROSEMIDE [Concomitant]
  4. PREVISCAN (FLUINDIONE) [Concomitant]
  5. PAROXETINE HCL [Concomitant]
  6. BISOPROLOL FUMARATE [Concomitant]
  7. ZOCOR (SIMVASTATN) [Concomitant]
  8. PIASCLEDINE (PERSEAE OLEUM, SOYA OIL) [Concomitant]
  9. EFFERALGAN (PARACETAMOL) [Concomitant]

REACTIONS (5)
  - DRUG INTERACTION [None]
  - ELECTROCARDIOGRAM T WAVE PEAKED [None]
  - HYPERKALAEMIA [None]
  - RENAL FAILURE [None]
  - VENTRICULAR EXTRASYSTOLES [None]
